FAERS Safety Report 6362109-5 (Version None)
Quarter: 2009Q3

REPORT INFORMATION
  Report Type: 
  Country: None (occurrence: None)
  Receive Date: 20090918
  Receipt Date: 20090914
  Transmission Date: 20100115
  Serious: Yes (Death)
  Sender: FDA-Public Use
  Company Number: GB-ELI_LILLY_AND_COMPANY-GB200909003237

PATIENT
  Age: 35 Year
  Sex: Male

DRUGS (1)
  1. BYETTA [Suspect]
     Dosage: 10 UG, UNKNOWN
     Route: 065

REACTIONS (1)
  - DEATH [None]
